FAERS Safety Report 8579385 (Version 2)
Quarter: 2013Q1

REPORT INFORMATION
  Report Type: Spontaneous
  Country: US (occurrence: US)
  Receive Date: 20120525
  Receipt Date: 20130220
  Transmission Date: 20140127
  Serious: No
  Sender: FDA-Public Use
  Company Number: US-BIOGENIDEC-2012BI017551

PATIENT
  Age: 21 Year
  Sex: Male

DRUGS (1)
  1. TYSABRI [Suspect]
     Indication: MULTIPLE SCLEROSIS
     Route: 042
     Dates: start: 20110825

REACTIONS (9)
  - Muscular weakness [Not Recovered/Not Resolved]
  - Musculoskeletal disorder [Not Recovered/Not Resolved]
  - Swelling [Not Recovered/Not Resolved]
  - Back pain [Not Recovered/Not Resolved]
  - Sensory disturbance [Recovered/Resolved]
  - Axillary pain [Not Recovered/Not Resolved]
  - Graft complication [Not Recovered/Not Resolved]
  - Chest discomfort [Not Recovered/Not Resolved]
  - Chest pain [Not Recovered/Not Resolved]
